FAERS Safety Report 10253335 (Version 1)
Quarter: 2014Q2

REPORT INFORMATION
  Report Type: Spontaneous
  Country: US (occurrence: None)
  Receive Date: 20140619
  Receipt Date: 20140619
  Transmission Date: 20141212
  Serious: Yes (Disabling, Other)
  Sender: FDA-Public Use
  Company Number: None

PATIENT
  Age: 54 Year
  Sex: Female
  Weight: 90.72 kg

DRUGS (3)
  1. TEGRETOL [Suspect]
     Indication: CONVULSION
     Dosage: (200 MG) 27/27, 100 X2 DAILY, X2 DAILY, BY MOUTH?REDUCED 5/2014.?
     Route: 048
     Dates: start: 201401
  2. DILANTIN [Concomitant]
  3. DAILY VITAMINS [Concomitant]

REACTIONS (5)
  - Somnolence [None]
  - Hypoaesthesia [None]
  - Balance disorder [None]
  - Bloody discharge [None]
  - Drug level decreased [None]
